FAERS Safety Report 8776604 (Version 1)
Quarter: 2012Q4

REPORT INFORMATION
  Report Type: 
  Country: GB (occurrence: GB)
  Receive Date: 20120911
  Receipt Date: 20120911
  Transmission Date: 20130627
  Serious: Yes (Hospitalization)
  Sender: FDA-Public Use
  Company Number: GB-ROCHE-1121032

PATIENT
  Age: 52 Year

DRUGS (1)
  1. NAPROXEN [Suspect]
     Indication: OSTEOARTHRITIS
     Route: 048
     Dates: start: 20120801, end: 20120815

REACTIONS (4)
  - Photosensitivity reaction [Recovering/Resolving]
  - Eczema infected [Unknown]
  - Eyelid oedema [Unknown]
  - Swelling face [Unknown]
